FAERS Safety Report 4962840-X (Version None)
Quarter: 2006Q1

REPORT INFORMATION
  Report Type: 
  Country: None (occurrence: None)
  Receive Date: 20060331
  Receipt Date: 20060324
  Transmission Date: 20060701
  Serious: Yes (Other)
  Sender: FDA-Public Use
  Company Number: 2006S1000055

PATIENT
  Age: 7 Day
  Sex: Male

DRUGS (10)
  1. INOMAX [Suspect]
     Indication: LUNG DISORDER
     Dosage: DOSE, FORM, ROUTE AND FREQUENCY, 5 PPM;INH_GAS;INH;CONT; INH
     Route: 055
     Dates: start: 20060317
  2. INOMAX [Suspect]
     Indication: PROPHYLAXIS
     Dosage: DOSE, FORM, ROUTE AND FREQUENCY, 5 PPM;INH_GAS;INH;CONT; INH
     Route: 055
     Dates: start: 20060317
  3. AMPICILLIN [Concomitant]
  4. GENTAMICIN [Concomitant]
  5. AMINOPHYLLIN [Concomitant]
  6. INDOMETHACIN [Concomitant]
  7. FUROSEMIDE [Concomitant]
  8. FENTANYL [Concomitant]
  9. CEFOTAXIME SODIUM [Concomitant]
  10. METRONIDAZOLE [Concomitant]

REACTIONS (2)
  - INTESTINAL PERFORATION [None]
  - NEONATAL DISORDER [None]
